FAERS Safety Report 4507122-5 (Version None)
Quarter: 2004Q4

REPORT INFORMATION
  Report Type: 
  Country: None (occurrence: None)
  Receive Date: 20041122
  Receipt Date: 20041112
  Transmission Date: 20050328
  Serious: Yes (Hospitalization)
  Sender: FDA-Public Use
  Company Number: US-MERCK-0411USA02469

PATIENT
  Age: 48 Year
  Sex: Female

DRUGS (5)
  1. VIOXX [Suspect]
     Route: 048
  2. METFORMIN [Suspect]
     Indication: DIABETES MELLITUS NON-INSULIN-DEPENDENT
     Route: 065
  3. OMEPRAZOLE [Concomitant]
     Route: 065
  4. AMITRIPTYLINE HYDROCHLORIDE [Concomitant]
     Route: 065
  5. METOPROLOL [Concomitant]
     Route: 065

REACTIONS (8)
  - DIABETIC KETOACIDOSIS [None]
  - HEART RATE INCREASED [None]
  - HYPERVENTILATION [None]
  - HYPOVOLAEMIA [None]
  - LACTIC ACIDOSIS [None]
  - RENAL IMPAIRMENT [None]
  - RESPIRATORY RATE INCREASED [None]
  - TACHYPNOEA [None]
